FAERS Safety Report 13930123 (Version 1)
Quarter: 2017Q3

REPORT INFORMATION
  Report Type: Spontaneous
  Country: DK (occurrence: DK)
  Receive Date: 20170901
  Receipt Date: 20170901
  Transmission Date: 20171127
  Serious: Yes (Hospitalization)
  Sender: FDA-Public Use
  Company Number: DK-SA-2017SA157383

PATIENT
  Sex: Female
  Weight: 1.73 kg

DRUGS (10)
  1. LANTUS [Suspect]
     Active Substance: INSULIN GLARGINE
     Indication: EXPOSURE DURING BREAST FEEDING
     Dosage: DOSE - 45 IE, QD
     Route: 064
     Dates: start: 20160307, end: 20160803
  2. GENTAMICIN. [Concomitant]
     Active Substance: GENTAMICIN
  3. PINEX [Concomitant]
     Active Substance: ACETAMINOPHEN
     Route: 065
     Dates: start: 20160803, end: 20160805
  4. PENTREXYL [Concomitant]
     Active Substance: AMPICILLIN
  5. LANTUS [Suspect]
     Active Substance: INSULIN GLARGINE
     Indication: FOETAL EXPOSURE DURING PREGNANCY
     Dosage: DOSE: 45 IE, QD
     Route: 063
     Dates: start: 20160803
  6. NYSTATIN. [Concomitant]
     Active Substance: NYSTATIN
     Route: 065
     Dates: start: 20160820, end: 20160903
  7. LANTUS [Suspect]
     Active Substance: INSULIN GLARGINE
     Indication: EXPOSURE DURING BREAST FEEDING
     Dosage: DOSE: 45 IE, QD
     Route: 063
     Dates: start: 20160803
  8. LANTUS [Suspect]
     Active Substance: INSULIN GLARGINE
     Indication: FOETAL EXPOSURE DURING PREGNANCY
     Dosage: DOSE - 45 IE, QD
     Route: 064
     Dates: start: 20160307, end: 20160803
  9. TOUJEO [Suspect]
     Active Substance: INSULIN GLARGINE
     Indication: FOETAL EXPOSURE DURING PREGNANCY
     Route: 064
     Dates: start: 20151223, end: 20160218
  10. SOLOSTAR [Suspect]
     Active Substance: DEVICE
     Indication: FOETAL EXPOSURE DURING PREGNANCY
     Dates: start: 20151223, end: 20160218

REACTIONS (6)
  - Neonatal respiratory distress syndrome [Unknown]
  - Exposure during breast feeding [Unknown]
  - Premature delivery [Unknown]
  - Jaundice [Unknown]
  - Traumatic haematoma [Unknown]
  - Foetal exposure during pregnancy [Unknown]

NARRATIVE: CASE EVENT DATE: 20160803
